FAERS Safety Report 17948536 (Version 2)
Quarter: 2020Q3

REPORT INFORMATION
  Report Type: Spontaneous
  Country: US (occurrence: US)
  Receive Date: 20200626
  Receipt Date: 20200702
  Transmission Date: 20201103
  Serious: Yes (Hospitalization, Other)
  Sender: FDA-Public Use
  Company Number: US-PFIZER INC-2020244737

PATIENT
  Age: 21 Year
  Sex: Female
  Weight: 60 kg

DRUGS (1)
  1. PHENELZINE SULFATE. [Suspect]
     Active Substance: PHENELZINE SULFATE
     Indication: BULIMIA NERVOSA
     Dosage: 90 MG, DAILY (^UP TO 90 MG/DAY FOR 4 WEEKS^)

REACTIONS (10)
  - Orthostatic hypotension [Recovering/Resolving]
  - Product use in unapproved indication [Unknown]
  - Somnolence [Unknown]
  - Acute psychosis [Recovered/Resolved]
  - Rebound psychosis [Recovered/Resolved]
  - Disorientation [Unknown]
  - Delirium [Recovered/Resolved]
  - Withdrawal syndrome [Unknown]
  - Off label use [Unknown]
  - Confusional state [Unknown]
